FAERS Safety Report 7339707-5 (Version None)
Quarter: 2011Q1

REPORT INFORMATION
  Report Type: 
  Country: None (occurrence: None)
  Receive Date: 20110309
  Receipt Date: 20110301
  Transmission Date: 20110831
  Serious: Yes (Hospitalization)
  Sender: FDA-Public Use
  Company Number: US-ELI_LILLY_AND_COMPANY-US201103000551

PATIENT
  Sex: Female
  Weight: 135.15 kg

DRUGS (4)
  1. BYETTA [Suspect]
     Indication: DIABETES MELLITUS
     Dosage: 5 UG, 2/D
     Route: 058
     Dates: start: 20100301, end: 20100401
  2. METFORMIN [Concomitant]
     Indication: DIABETES MELLITUS
     Dosage: UNK, 2/D
     Route: 048
  3. YAZ                                /06358701/ [Concomitant]
     Indication: CONTRACEPTION
     Dosage: UNK, DAILY (1/D)
     Route: 048
  4. BYETTA [Suspect]
     Dosage: 10 UG, 2/D
     Route: 058
     Dates: start: 20100401, end: 20110131

REACTIONS (6)
  - BRONCHITIS [None]
  - WEIGHT DECREASED [None]
  - URTICARIA [None]
  - RASH PRURITIC [None]
  - PAIN OF SKIN [None]
  - PHOTOSENSITIVITY REACTION [None]
